FAERS Safety Report 10372125 (Version 2)
Quarter: 2014Q3

REPORT INFORMATION
  Report Type: Spontaneous
  Country: US (occurrence: US)
  Receive Date: 20140808
  Receipt Date: 20140909
  Transmission Date: 20150326
  Serious: Yes (Hospitalization)
  Sender: FDA-Public Use
  Company Number: US-BAYER-2014-117634

PATIENT
  Age: 27 Year
  Sex: Female
  Weight: 59.41 kg

DRUGS (1)
  1. MIRENA [Suspect]
     Active Substance: LEVONORGESTREL
     Dosage: 20 MCG/24HR, CONT
     Route: 015
     Dates: start: 20111121, end: 20120809

REACTIONS (5)
  - Device dislocation [None]
  - Injury [None]
  - Emotional distress [None]
  - Pain [None]
  - Device dislocation [None]

NARRATIVE: CASE EVENT DATE: 20120809
